FAERS Safety Report 18594798 (Version 1)
Quarter: 2020Q4

REPORT INFORMATION
  Report Type: Spontaneous
  Country: US (occurrence: US)
  Receive Date: 20201208
  Receipt Date: 20201208
  Transmission Date: 20210114
  Serious: Yes (Hospitalization)
  Sender: FDA-Public Use
  Company Number: None

PATIENT
  Age: 22 Year
  Sex: Female
  Weight: 63.5 kg

DRUGS (3)
  1. LAMICTAL [Concomitant]
     Active Substance: LAMOTRIGINE
  2. SKYLA [Suspect]
     Active Substance: LEVONORGESTREL
     Dates: start: 20161227, end: 20190211
  3. WELLBUTRIN [Concomitant]
     Active Substance: BUPROPION HYDROCHLORIDE

REACTIONS (4)
  - Pregnancy with contraceptive device [None]
  - Abortion induced [None]
  - Post-traumatic stress disorder [None]
  - Embedded device [None]

NARRATIVE: CASE EVENT DATE: 20190208
